FAERS Safety Report 17686766 (Version 1)
Quarter: 2020Q2

REPORT INFORMATION
  Report Type: Spontaneous
  Country: IL (occurrence: IL)
  Receive Date: 20200421
  Receipt Date: 20200421
  Transmission Date: 20200714
  Serious: Yes (Death, Hospitalization)
  Sender: FDA-Public Use
  Company Number: IL-ABBVIE-20K-082-3370928-00

PATIENT
  Age: 58 Year
  Sex: Female

DRUGS (1)
  1. VENETOCLAX. [Suspect]
     Active Substance: VENETOCLAX
     Indication: CHRONIC LYMPHOCYTIC LEUKAEMIA
     Route: 048

REACTIONS (6)
  - Thrombocytopenia [Unknown]
  - Pyrexia [Unknown]
  - Lymphadenopathy [Unknown]
  - White blood cell count increased [Unknown]
  - Neutropenia [Unknown]
  - Chronic lymphocytic leukaemia [Fatal]
